FAERS Safety Report 13966960 (Version 3)
Quarter: 2017Q3

REPORT INFORMATION
  Report Type: Spontaneous
  Country: BR (occurrence: BR)
  Receive Date: 20170914
  Receipt Date: 20170922
  Transmission Date: 20171128
  Serious: Yes (Hospitalization, Other)
  Sender: FDA-Public Use
  Company Number: BR-AMGEN-BRASP2017138906

PATIENT
  Age: 63 Year
  Sex: Male

DRUGS (6)
  1. TECNOMET [Concomitant]
     Active Substance: METHOTREXATE
     Dosage: 15 MG PER WEEK
  2. OSTEONUTRI [Concomitant]
     Dosage: UNK
  3. NUTRIDRINK MAX [Concomitant]
     Dosage: UNK
  4. ENDOFOLIN [Concomitant]
     Active Substance: FOLIC ACID
     Dosage: 5 MG, WEEKLY (1 CAPSULE ONLY ON TUESDAYS)
  5. ENBREL [Suspect]
     Active Substance: ETANERCEPT
     Indication: PRODUCT USED FOR UNKNOWN INDICATION
     Dosage: 50 MG, WEEKLY
     Route: 058
     Dates: start: 20170802, end: 20170809
  6. OSTENAN [Concomitant]
     Dosage: 70 MG, WEEKLY

REACTIONS (1)
  - Acute myocardial infarction [Unknown]
